FAERS Safety Report 18169034 (Version 8)
Quarter: 2022Q2

REPORT INFORMATION
  Report Type: Spontaneous
  Country: US (occurrence: US)
  Receive Date: 20200819
  Receipt Date: 20220418
  Transmission Date: 20220720
  Serious: No
  Sender: FDA-Public Use
  Company Number: US-PFIZER INC-2020319461

PATIENT
  Age: 74 Year
  Sex: Female
  Weight: 78.47 kg

DRUGS (8)
  1. IBRANCE [Suspect]
     Active Substance: PALBOCICLIB
     Indication: Breast cancer female
     Dosage: 125 MG
     Dates: start: 20210630
  2. IBRANCE [Suspect]
     Active Substance: PALBOCICLIB
     Dosage: 75 MG, CYCLIC (21 DAYS THEN OFF FOR 7 DAYS )
     Route: 048
     Dates: start: 20200629
  3. IBRANCE [Suspect]
     Active Substance: PALBOCICLIB
     Dosage: 100 MG
  4. IBRANCE [Suspect]
     Active Substance: PALBOCICLIB
     Dosage: 75 MG
     Dates: start: 20211027
  5. LEVOTHYROXINE SODIUM [Concomitant]
     Active Substance: LEVOTHYROXINE SODIUM
     Indication: Thyroid disorder
     Dosage: 0.88 UG, 1X/DAY
     Route: 048
  6. ROSUVASTATIN [Concomitant]
     Active Substance: ROSUVASTATIN
     Indication: Arteriosclerosis
     Dosage: 10 MG, 1X/DAY
     Route: 048
  7. ANASTROZOLE [Concomitant]
     Active Substance: ANASTROZOLE
     Indication: Oestrogen therapy
     Dosage: 1 MG, 1X/DAY
     Route: 048
  8. FLAXSEED [Concomitant]
     Active Substance: FLAX SEED
     Dosage: UNK

REACTIONS (13)
  - Product dispensing error [Unknown]
  - Musculoskeletal discomfort [Unknown]
  - Pain [Recovered/Resolved]
  - Red blood cell count decreased [Unknown]
  - White blood cell count decreased [Unknown]
  - Anaemia [Unknown]
  - Neoplasm progression [Unknown]
  - Gait disturbance [Unknown]
  - Somnolence [Unknown]
  - Feeling abnormal [Unknown]
  - Tumour marker abnormal [Unknown]
  - Walking aid user [Unknown]
  - Product dose omission issue [Unknown]
